FAERS Safety Report 9707889 (Version 1)
Quarter: 2013Q4

REPORT INFORMATION
  Report Type: Spontaneous
  Country: US (occurrence: None)
  Receive Date: 20131122
  Receipt Date: 20131122
  Transmission Date: 20140711
  Serious: Yes (Hospitalization)
  Sender: FDA-Public Use
  Company Number: None

PATIENT
  Age: 56 Year
  Sex: Female
  Weight: 101 kg

DRUGS (2)
  1. BUTORPHANOL [Suspect]
  2. MORPHINE (DURAMORPH) [Concomitant]

REACTIONS (3)
  - Respiratory depression [None]
  - Somnolence [None]
  - Depressed level of consciousness [None]
